FAERS Safety Report 13533284 (Version 2)
Quarter: 2017Q2

REPORT INFORMATION
  Report Type: Spontaneous
  Country: CA (occurrence: CA)
  Receive Date: 20170510
  Receipt Date: 20170607
  Transmission Date: 20170830
  Serious: Yes (Other)
  Sender: FDA-Public Use
  Company Number: CA-UCBSA-2016045913

PATIENT
  Age: 31 Year
  Sex: Female
  Weight: 55.3 kg

DRUGS (5)
  1. LEVETIRACETAM. [Suspect]
     Active Substance: LEVETIRACETAM
     Indication: SEIZURE
     Dosage: 500 MG, 2X/DAY (BID)
     Route: 048
     Dates: start: 20100329
  2. MATERNA [Concomitant]
     Active Substance: MINERALS\VITAMINS
     Indication: PROPHYLAXIS
     Dosage: UNK
     Dates: start: 20141001
  3. VIT B COMPLEX [Concomitant]
     Indication: PRODUCT USED FOR UNKNOWN INDICATION
     Dosage: UNK, ONCE DAILY (QD)
  4. FOLIC ACID. [Concomitant]
     Active Substance: FOLIC ACID
     Indication: PROPHYLAXIS
     Dosage: 5 MG, ONCE DAILY (QD)
     Dates: start: 20100329
  5. UBIQUINOL [Concomitant]
     Active Substance: UBIQUINOL
     Indication: PROPHYLAXIS
     Dosage: UNK
     Dates: start: 20150401

REACTIONS (4)
  - Off label use [Unknown]
  - Breast feeding [Unknown]
  - Pregnancy [Unknown]
  - Placenta praevia [Recovered/Resolved]

NARRATIVE: CASE EVENT DATE: 20100329
